FAERS Safety Report 4991304-2 (Version None)
Quarter: 2006Q2

REPORT INFORMATION
  Report Type: 
  Country: None (occurrence: None)
  Receive Date: 20060501
  Receipt Date: 20060501
  Transmission Date: 20061013
  Serious: Yes (Hospitalization, Other)
  Sender: FDA-Public Use
  Company Number: None

PATIENT
  Sex: Female
  Weight: 59.3 kg

DRUGS (7)
  1. CISPLATIN [Suspect]
     Indication: SQUAMOUS CELL CARCINOMA OF THE CERVIX
     Dosage: 98 MG
     Dates: start: 20051012, end: 20051019
  2. CISPLATIN [Suspect]
     Indication: SQUAMOUS CELL CARCINOMA OF THE CERVIX
     Dosage: 98 MG
     Dates: start: 20051028
  3. ERBITUX [Suspect]
     Dosage: 1222.5 MG
     Dates: start: 20051012, end: 20051026
  4. LOVENOX [Concomitant]
  5. MORPHINE [Concomitant]
  6. MORPHINE ER [Concomitant]
  7. SENOKOT [Concomitant]

REACTIONS (5)
  - ANAEMIA [None]
  - CONFUSIONAL STATE [None]
  - DISEASE PROGRESSION [None]
  - HAEMATURIA [None]
  - HYPOMAGNESAEMIA [None]
